FAERS Safety Report 7038761-8 (Version None)
Quarter: 2010Q4

REPORT INFORMATION
  Report Type: 
  Country: None (occurrence: None)
  Receive Date: 20101012
  Receipt Date: 20101004
  Transmission Date: 20110411
  Serious: Yes (Hospitalization)
  Sender: FDA-Public Use
  Company Number: 2005BI008189

PATIENT
  Age: 33 Year
  Sex: Female
  Weight: 54 kg

DRUGS (1)
  1. AVONEX [Suspect]
     Indication: MULTIPLE SCLEROSIS
     Route: 030
     Dates: start: 20010413

REACTIONS (4)
  - AMNESIA [None]
  - BLINDNESS [None]
  - MEMORY IMPAIRMENT [None]
  - SUBARACHNOID HAEMORRHAGE [None]
